FAERS Safety Report 9275535 (Version 1)
Quarter: 2013Q2

REPORT INFORMATION
  Report Type: Spontaneous
  Country: US (occurrence: None)
  Receive Date: 20130502
  Receipt Date: 20130502
  Transmission Date: 20140414
  Serious: Yes (Other)
  Sender: FDA-Public Use
  Company Number: None

PATIENT
  Age: 15 Year
  Sex: Female
  Weight: 64 kg

DRUGS (6)
  1. PRIVIGEN [Suspect]
     Indication: IDIOPATHIC THROMBOCYTOPENIC PURPURA
     Dosage: 51.6 GRAMS  ONCE IV
     Route: 042
     Dates: start: 20130228, end: 20130228
  2. DIPHENHYDRAMINE [Concomitant]
  3. DEXTROSE /NACL /KCL [Concomitant]
  4. ACETAMINOPHEN [Concomitant]
  5. ATENOLOL [Concomitant]
  6. PLATELETS [Concomitant]

REACTIONS (2)
  - Burkholderia test positive [None]
  - No adverse event [None]
